FAERS Safety Report 12409205 (Version 2)
Quarter: 2016Q2

REPORT INFORMATION
  Report Type: Report from Study
  Country: NL (occurrence: NL)
  Receive Date: 20160526
  Receipt Date: 20160628
  Transmission Date: 20160815
  Serious: Yes (Hospitalization)
  Sender: FDA-Public Use
  Company Number: PHHY2016NL072399

PATIENT
  Sex: Male

DRUGS (1)
  1. SANDOSTATINE LAR [Suspect]
     Active Substance: OCTREOTIDE ACETATE
     Indication: CARCINOID SYNDROME
     Dosage: 30 MG/2ML, QMO ONCE EVERY 4 WEEKS
     Route: 030

REACTIONS (3)
  - Dehydration [Recovering/Resolving]
  - Diarrhoea [Recovering/Resolving]
  - Haemoglobin decreased [Recovering/Resolving]
